FAERS Safety Report 25986953 (Version 2)
Quarter: 2025Q4

REPORT INFORMATION
  Report Type: Spontaneous
  Country: US (occurrence: US)
  Receive Date: 20251102
  Receipt Date: 20251210
  Transmission Date: 20260117
  Serious: No
  Sender: GLAXOSMITHKLINE
  Company Number: US-GSK-US2025136948

PATIENT
  Sex: Female

DRUGS (1)
  1. TRELEGY ELLIPTA [Suspect]
     Active Substance: FLUTICASONE FUROATE\UMECLIDINIUM BROMIDE\VILANTEROL TRIFENATATE
     Indication: Chronic obstructive pulmonary disease
     Dosage: TRELEGY ELLIPTA 200/62.5/25 MCG INH ONE DOSE EVERY MORNING

REACTIONS (3)
  - Oxygen saturation decreased [Unknown]
  - Drug ineffective [Unknown]
  - Product complaint [Unknown]
